FAERS Safety Report 6626440-8 (Version None)
Quarter: 2010Q1

REPORT INFORMATION
  Report Type: 
  Country: None (occurrence: None)
  Receive Date: 20100310
  Receipt Date: 20091111
  Transmission Date: 20100710
  Serious: No
  Sender: FDA-Public Use
  Company Number: US-ABBOTT-09P-163-0608716-00

PATIENT
  Sex: Female
  Weight: 87.168 kg

DRUGS (5)
  1. LUPRON DEPOT [Suspect]
     Indication: ENDOMETRIOSIS
  2. POSTIL [Concomitant]
     Indication: ENDOMETRIOSIS
  3. NORCO [Concomitant]
     Indication: ENDOMETRIOSIS
  4. HYDROCHLOROTHIAZIDE [Concomitant]
     Indication: HYPERTENSION
  5. CYMBALTA [Concomitant]
     Indication: PANIC ATTACK

REACTIONS (6)
  - INFLUENZA LIKE ILLNESS [None]
  - PAIN [None]
  - PRURITUS [None]
  - PYREXIA [None]
  - RASH PAPULAR [None]
  - RASH PUSTULAR [None]
